FAERS Safety Report 16064495 (Version 1)
Quarter: 2019Q1

REPORT INFORMATION
  Report Type: Spontaneous
  Country: FR (occurrence: FR)
  Receive Date: 20190312
  Receipt Date: 20190312
  Transmission Date: 20190418
  Serious: Yes (Hospitalization)
  Sender: FDA-Public Use
  Company Number: FR-MYLANLABS-2019M1022529

PATIENT
  Age: 58 Year
  Sex: Female
  Weight: 44.5 kg

DRUGS (9)
  1. PARACETAMOL [Concomitant]
     Active Substance: ACETAMINOPHEN
     Dosage: UNK
  2. MIANSERINE ARROW [Suspect]
     Active Substance: MIANSERIN HYDROCHLORIDE
     Indication: DEPRESSION
     Dosage: 1 DOSAGE FORM, QD
     Route: 048
     Dates: start: 20180808, end: 20180816
  3. RYDAPT [Suspect]
     Active Substance: MIDOSTAURIN
     Indication: ACUTE MYELOID LEUKAEMIA
     Dosage: 50MG / D FROM J8 TO J21
     Route: 048
     Dates: start: 20180327, end: 20180816
  4. MERONEM (MEROPENEM TRIHYDRATE) [Suspect]
     Active Substance: MEROPENEM
     Indication: LUNG DISORDER
     Dosage: 6 GRAM, QD
     Route: 041
     Dates: start: 20180726
  5. ARACYTINE [Suspect]
     Active Substance: CYTARABINE
     Indication: ACUTE MYELOID LEUKAEMIA
     Dosage: 0MG / M? FROM 19/03 TO 26/03/18, THEN 3000 MG / M?
     Route: 041
     Dates: start: 20180319, end: 20180815
  6. PANTOPRAZOLE MYLAN [Concomitant]
     Active Substance: PANTOPRAZOLE SODIUM
     Dosage: UNK
  7. NEBIVOLOL SANDOZ [Concomitant]
     Active Substance: NEBIVOLOL
     Dosage: UNK
  8. OROZAMUDOL 50 MG, COMPRIM? ORODISPERSIBLE [Suspect]
     Active Substance: TRAMADOL
     Indication: HEADACHE
     Dosage: 100 MILLIGRAM, TOTAL
     Route: 048
     Dates: start: 20180815, end: 20180815
  9. AMBISOME [Suspect]
     Active Substance: AMPHOTERICIN B
     Indication: LUNG DISORDER
     Dosage: 180 MILLIGRAM
     Route: 041
     Dates: start: 20180727, end: 20180817

REACTIONS (3)
  - Vertigo [Recovering/Resolving]
  - Dysarthria [Recovering/Resolving]
  - Cerebellar syndrome [Recovering/Resolving]

NARRATIVE: CASE EVENT DATE: 20180816
